FAERS Safety Report 7935262-7 (Version None)
Quarter: 2011Q4

REPORT INFORMATION
  Report Type: 
  Country: None (occurrence: None)
  Receive Date: 20111122
  Receipt Date: 20111118
  Transmission Date: 20120403
  Serious: Yes (Other)
  Sender: FDA-Public Use
  Company Number: BR-PFIZER INC-2011282832

PATIENT
  Age: 59 Year
  Sex: Female

DRUGS (5)
  1. LYRICA [Suspect]
     Indication: BACK PAIN
     Dosage: 75 MG (ONE CAPSULE), 1X/DAY
     Route: 048
     Dates: start: 20040101
  2. SOTALOL HYDROCHLORIDE [Concomitant]
     Indication: ARRHYTHMIA
     Dosage: ONE TABLET IN THE MORNING AND HALF TABLET AT NIGHT
     Dates: start: 20070101
  3. DIOVAN [Concomitant]
     Indication: HYPERTENSION
     Dosage: ONE TABLET, ONCE DAILY
     Dates: start: 20070101
  4. LYRICA [Suspect]
     Indication: MYALGIA
  5. RASILEZ [Concomitant]
     Indication: HYPERTENSION
     Dosage: ONE TABLET, ONCE DAILY
     Dates: start: 20070101

REACTIONS (4)
  - BONE PAIN [None]
  - FALL [None]
  - FACIAL BONES FRACTURE [None]
  - TACHYARRHYTHMIA [None]
